FAERS Safety Report 4635306-4 (Version None)
Quarter: 2005Q2

REPORT INFORMATION
  Report Type: 
  Country: None (occurrence: None)
  Receive Date: 20050411
  Receipt Date: 20050401
  Transmission Date: 20051028
  Serious: Yes (Hospitalization, Other)
  Sender: FDA-Public Use
  Company Number: KII-2005-0015705

PATIENT
  Age: 55 Year
  Sex: Female

DRUGS (1)
  1. MORPHINE SULFATE [Suspect]
     Indication: PAIN
     Dosage: ORAL
     Route: 048

REACTIONS (8)
  - ANXIETY [None]
  - DELIRIUM TREMENS [None]
  - DYSARTHRIA [None]
  - MEDICATION ERROR [None]
  - OVERDOSE [None]
  - OXYGEN SATURATION DECREASED [None]
  - RESTLESSNESS [None]
  - SOMNOLENCE [None]
